FAERS Safety Report 4433892-0 (Version None)
Quarter: 2004Q3

REPORT INFORMATION
  Report Type: 
  Country: None (occurrence: None)
  Receive Date: 20040826
  Receipt Date: 20040217
  Transmission Date: 20050211
  Serious: Yes (Death, Hospitalization)
  Sender: FDA-Public Use
  Company Number: US-BRISTOL-MYERS SQUIBB COMPANY-12508818

PATIENT
  Age: 59 Year
  Sex: Female

DRUGS (9)
  1. CARBOPLATIN [Suspect]
     Indication: OVARIAN CANCER
     Route: 042
     Dates: start: 20021104, end: 20021104
  2. PACLITAXEL [Suspect]
     Indication: OVARIAN CANCER
     Route: 042
     Dates: start: 20021104, end: 20021104
  3. INTERFERON GAMMA [Suspect]
     Indication: OVARIAN CANCER
     Route: 058
     Dates: start: 20021104, end: 20021122
  4. ACETAMINOPHEN [Concomitant]
     Dates: start: 20021106
  5. IBUPROFEN [Concomitant]
     Dates: start: 20021105
  6. ONDANSETRON [Concomitant]
     Dates: start: 20021105
  7. HYDROCODONE + ACETAMINOPHEN [Concomitant]
     Dates: start: 20021117, end: 20021124
  8. PEPCID [Concomitant]
     Dates: start: 20021123, end: 20021123
  9. MAALOX [Concomitant]
     Dates: start: 20021122, end: 20021122

REACTIONS (5)
  - ABDOMINAL ABSCESS [None]
  - ACUTE PRERENAL FAILURE [None]
  - ANAEMIA [None]
  - INTESTINAL FISTULA [None]
  - OVARIAN CANCER [None]
